FAERS Safety Report 12399009 (Version 1)
Quarter: 2016Q2

REPORT INFORMATION
  Report Type: Spontaneous
  Country: ES (occurrence: ES)
  Receive Date: 20160524
  Receipt Date: 20160524
  Transmission Date: 20160815
  Serious: Yes (Death, Other)
  Sender: FDA-Public Use
  Company Number: ES-CELGENEUS-ESP-2016053335

PATIENT

DRUGS (1)
  1. AZACITIDINE. [Suspect]
     Active Substance: AZACITIDINE
     Indication: MYELODYSPLASTIC SYNDROME
     Dosage: 75 MILLIGRAM/SQ. METER
     Route: 065
     Dates: start: 201508, end: 201603

REACTIONS (10)
  - Cerebral haemorrhage [Unknown]
  - Viral infection [Unknown]
  - Haemoptysis [Unknown]
  - Gas gangrene [Unknown]
  - Death [Fatal]
  - Fungal infection [Unknown]
  - Acute myeloid leukaemia [Unknown]
  - Thrombocytopenia [Unknown]
  - Bacterial infection [Unknown]
  - Respiratory tract infection [Unknown]
